FAERS Safety Report 11077932 (Version 4)
Quarter: 2016Q1

REPORT INFORMATION
  Report Type: Spontaneous
  Country: JP (occurrence: JP)
  Receive Date: 20150430
  Receipt Date: 20160217
  Transmission Date: 20160525
  Serious: Yes (Other)
  Sender: FDA-Public Use
  Company Number: JP-AMGEN-JPNSP2015041446

PATIENT
  Age: 82 Year
  Sex: Male
  Weight: 60 kg

DRUGS (10)
  1. OXINORM                            /00045603/ [Concomitant]
     Active Substance: OXYCODONE HYDROCHLORIDE
     Indication: CANCER PAIN
     Dosage: 2.5 MG, AS NECESSARY
     Route: 048
     Dates: start: 20150430
  2. DECADRON [Concomitant]
     Active Substance: DEXAMETHASONE
     Indication: PROSTATE CANCER
     Dosage: 0.5 MG, QD
     Route: 048
     Dates: start: 20130307
  3. LOXONIN [Concomitant]
     Active Substance: LOXOPROFEN SODIUM
     Indication: METASTASES TO BONE
     Dosage: 60 MG, TID
     Route: 048
     Dates: start: 20130207
  4. BETANIS [Concomitant]
     Active Substance: MIRABEGRON
     Indication: DYSURIA
     Dosage: 50 MG, QD
     Route: 048
     Dates: start: 20141204, end: 20150108
  5. MOHRUS [Concomitant]
     Active Substance: KETOPROFEN
     Dosage: 30 MG, UNK
     Route: 050
     Dates: start: 20130404
  6. RANMARK [Suspect]
     Active Substance: DENOSUMAB
     Indication: METASTASES TO BONE
     Dosage: 120 MG, UNK
     Route: 058
     Dates: start: 20120628
  7. GONAX [Concomitant]
     Active Substance: DEGARELIX
     Indication: PROSTATE CANCER
     Dosage: 80 MG, UNK
     Route: 058
     Dates: start: 20121206
  8. XTANDI [Concomitant]
     Active Substance: ENZALUTAMIDE
     Indication: PROSTATE CANCER
     Dosage: 160 MG, QD
     Route: 048
     Dates: start: 20150430
  9. TAKEPRON [Concomitant]
     Active Substance: LANSOPRAZOLE
     Indication: GASTRIC ULCER
     Dosage: 15 MG, QD
     Route: 048
     Dates: start: 20130725
  10. BETANIS [Concomitant]
     Active Substance: MIRABEGRON
     Indication: DYSURIA

REACTIONS (1)
  - Osteonecrosis of jaw [Not Recovered/Not Resolved]

NARRATIVE: CASE EVENT DATE: 20131004
